FAERS Safety Report 12598563 (Version 5)
Quarter: 2017Q1

REPORT INFORMATION
  Report Type: Spontaneous
  Country: US (occurrence: US)
  Receive Date: 20160726
  Receipt Date: 20170124
  Transmission Date: 20170428
  Serious: Yes (Hospitalization, Other)
  Sender: FDA-Public Use
  Company Number: US-ACTELION-A-NJ2016-139833

PATIENT
  Age: 53 Year
  Sex: Female
  Weight: 47.62 kg

DRUGS (5)
  1. AMBRISENTAN [Suspect]
     Active Substance: AMBRISENTAN
     Dosage: 10 MG, QD
     Route: 048
  2. VENTAVIS [Suspect]
     Active Substance: ILOPROST
     Indication: PULMONARY HYPERTENSION
     Dosage: UNK, 6 X/DAY
     Route: 055
     Dates: end: 20160802
  3. AMBRISENTAN [Suspect]
     Active Substance: AMBRISENTAN
     Indication: PRODUCT USED FOR UNKNOWN INDICATION
     Dosage: 5 MG, QD
     Route: 048
     Dates: start: 20140404
  4. REVATIO [Concomitant]
     Active Substance: SILDENAFIL CITRATE
  5. DILTIAZEM. [Concomitant]
     Active Substance: DILTIAZEM

REACTIONS (12)
  - Dyspnoea [Not Recovered/Not Resolved]
  - Crying [Unknown]
  - Emotional disorder [Unknown]
  - Weight decreased [Unknown]
  - Unevaluable event [Unknown]
  - Headache [Unknown]
  - Vomiting [Unknown]
  - Pulmonary arterial hypertension [Unknown]
  - Malaise [Unknown]
  - Condition aggravated [Unknown]
  - Treatment noncompliance [Unknown]
  - Nasopharyngitis [Not Recovered/Not Resolved]

NARRATIVE: CASE EVENT DATE: 20160630
